FAERS Safety Report 6841808-2 (Version None)
Quarter: 2010Q3

REPORT INFORMATION
  Report Type: 
  Country: None (occurrence: None)
  Receive Date: 20100714
  Receipt Date: 20070717
  Transmission Date: 20110219
  Serious: No
  Sender: FDA-Public Use
  Company Number: US-PFIZER INC-2007059464

PATIENT
  Sex: Female
  Weight: 58.5 kg

DRUGS (6)
  1. CHANTIX [Suspect]
     Indication: SMOKING CESSATION THERAPY
     Route: 048
     Dates: start: 20070501, end: 20070515
  2. GLUCOSAMINE [Interacting]
     Indication: CARPAL TUNNEL SYNDROME
  3. CHONDROITIN [Interacting]
     Indication: CARPAL TUNNEL SYNDROME
  4. CALCIUM [Concomitant]
  5. VITAMINS [Concomitant]
  6. DYAZIDE [Concomitant]

REACTIONS (3)
  - DISCOMFORT [None]
  - DRUG INTERACTION [None]
  - PAIN [None]
